FAERS Safety Report 9918892 (Version 2)
Quarter: 2014Q2

REPORT INFORMATION
  Report Type: Spontaneous
  Country: US (occurrence: US)
  Receive Date: 20140224
  Receipt Date: 20140415
  Transmission Date: 20141212
  Serious: Yes (Death)
  Sender: FDA-Public Use
  Company Number: US-PFIZER INC-2014049274

PATIENT
  Age: 61 Year
  Sex: Male

DRUGS (2)
  1. SUTENT [Suspect]
     Indication: PANCREATIC CARCINOMA
     Dosage: 12.5 MG, 3 CAPS DAILY (4 WKS ON, 2 WKS OFF)
     Route: 048
     Dates: start: 20131231, end: 20140326
  2. OXYCODONE [Concomitant]
     Dosage: UNK

REACTIONS (5)
  - Death [Fatal]
  - Diarrhoea [Unknown]
  - Asthenia [Unknown]
  - Full blood count decreased [Unknown]
  - Joint swelling [Unknown]
